FAERS Safety Report 12330400 (Version 1)
Quarter: 2016Q2

REPORT INFORMATION
  Report Type: Spontaneous
  Country: US (occurrence: US)
  Receive Date: 20160504
  Receipt Date: 20160504
  Transmission Date: 20160815
  Serious: No
  Sender: FDA-Public Use
  Company Number: PHEH2016US010950

PATIENT
  Age: 66 Year
  Sex: Female

DRUGS (2)
  1. MEKINIST [Suspect]
     Active Substance: TRAMETINIB DIMETHYL SULFOXIDE
     Indication: PRODUCT USED FOR UNKNOWN INDICATION
     Dosage: 2 DF, QD
     Route: 048
  2. TAFINLAR [Suspect]
     Active Substance: DABRAFENIB MESYLATE
     Indication: PRODUCT USED FOR UNKNOWN INDICATION
     Dosage: 1 DF, EVERY 12 HOURS
     Route: 048

REACTIONS (9)
  - Decreased appetite [Unknown]
  - Malaise [Unknown]
  - Arthralgia [Unknown]
  - Headache [Unknown]
  - Fatigue [Unknown]
  - Pyrexia [Unknown]
  - Chills [Unknown]
  - Dizziness [Unknown]
  - Night sweats [Unknown]
